FAERS Safety Report 18513222 (Version 2)
Quarter: 2021Q1

REPORT INFORMATION
  Report Type: Spontaneous
  Country: US (occurrence: US)
  Receive Date: 20201117
  Receipt Date: 20210106
  Transmission Date: 20210419
  Serious: Yes (Hospitalization)
  Sender: FDA-Public Use
  Company Number: US-TEVA-2020-US-1848937

PATIENT
  Age: 69 Year
  Sex: Female

DRUGS (9)
  1. THIAMINE. [Suspect]
     Active Substance: THIAMINE
     Indication: COVID-19 PNEUMONIA
     Route: 065
  2. ZINC. [Suspect]
     Active Substance: ZINC
     Indication: COVID-19 PNEUMONIA
     Route: 065
  3. AZITHROMYCIN ANHYDROUS. [Suspect]
     Active Substance: AZITHROMYCIN ANHYDROUS
     Indication: COVID-19 PNEUMONIA
     Route: 065
  4. ASCORBIC ACID. [Suspect]
     Active Substance: ASCORBIC ACID
     Indication: COVID-19 PNEUMONIA
     Route: 042
  5. WARFARIN [Suspect]
     Active Substance: WARFARIN
     Indication: ANTICOAGULANT THERAPY
     Route: 048
  6. MELATONIN [Suspect]
     Active Substance: MELATONIN
     Indication: COVID-19 PNEUMONIA
     Route: 065
  7. ENOXAPARIN SODIUM. [Suspect]
     Active Substance: ENOXAPARIN SODIUM
     Indication: ANTICOAGULANT THERAPY
     Route: 065
  8. VITAMIN D3 [Suspect]
     Active Substance: CHOLECALCIFEROL
     Indication: COVID-19 PNEUMONIA
     Route: 065
  9. HYDROXYCHLOROQUINE [Suspect]
     Active Substance: HYDROXYCHLOROQUINE
     Indication: COVID-19 PNEUMONIA
     Route: 065

REACTIONS (2)
  - Off label use [Unknown]
  - Haematoma [Recovered/Resolved]
